FAERS Safety Report 23546082 (Version 1)
Quarter: 2024Q1

REPORT INFORMATION
  Report Type: Spontaneous
  Country: US (occurrence: US)
  Receive Date: 20240220
  Receipt Date: 20240220
  Transmission Date: 20240410
  Serious: No
  Sender: FDA-Public Use
  Company Number: US-009507513-2402USA005824

PATIENT
  Age: 78 Year
  Sex: Male

DRUGS (1)
  1. KEYTRUDA [Suspect]
     Active Substance: PEMBROLIZUMAB
     Route: 042

REACTIONS (4)
  - SARS-CoV-2 test positive [Unknown]
  - Ear pain [Unknown]
  - Oropharyngeal pain [Unknown]
  - Muscle tightness [Unknown]

NARRATIVE: CASE EVENT DATE: 20240214
